FAERS Safety Report 23132725 (Version 3)
Quarter: 2023Q4

REPORT INFORMATION
  Report Type: Spontaneous
  Country: US (occurrence: US)
  Receive Date: 20231101
  Receipt Date: 20231205
  Transmission Date: 20240110
  Serious: Yes (Other)
  Sender: FDA-Public Use
  Company Number: US-BAUSCH-BL-2023-016046

PATIENT
  Age: 59 Year
  Sex: Male

DRUGS (5)
  1. CARDIZEM [Interacting]
     Active Substance: DILTIAZEM HYDROCHLORIDE
     Indication: Prostate cancer
     Route: 065
  2. CARDIZEM [Interacting]
     Active Substance: DILTIAZEM HYDROCHLORIDE
     Route: 065
     Dates: start: 2023
  3. ORGOVYX [Interacting]
     Active Substance: RELUGOLIX
     Indication: Prostate cancer
     Route: 048
  4. ORGOVYX [Interacting]
     Active Substance: RELUGOLIX
     Route: 048
     Dates: start: 20231016
  5. ORGOVYX [Interacting]
     Active Substance: RELUGOLIX
     Route: 065

REACTIONS (4)
  - Atrial fibrillation [Recovering/Resolving]
  - Drug interaction [Unknown]
  - Hot flush [Not Recovered/Not Resolved]
  - Insomnia [Unknown]
